FAERS Safety Report 7735520-5 (Version None)
Quarter: 2011Q3

REPORT INFORMATION
  Report Type: 
  Country: None (occurrence: None)
  Receive Date: 20110907
  Receipt Date: 20110830
  Transmission Date: 20111222
  Serious: No
  Sender: FDA-Public Use
  Company Number: US-BAYER-2011-080782

PATIENT
  Age: 41 Year
  Sex: Female

DRUGS (1)
  1. MIRENA [Suspect]
     Indication: CONTRACEPTION
     Dosage: 20 MCG/24HR, CONT
     Route: 015
     Dates: start: 20110304, end: 20110525

REACTIONS (8)
  - VULVOVAGINAL SWELLING [None]
  - MALAISE [None]
  - NAUSEA [None]
  - ABDOMINAL DISCOMFORT [None]
  - PROCEDURAL PAIN [None]
  - VULVOVAGINAL PAIN [None]
  - ABDOMINAL PAIN [None]
  - FEELING HOT [None]
